FAERS Safety Report 26122974 (Version 1)
Quarter: 2025Q4

REPORT INFORMATION
  Report Type: Spontaneous
  Country: US (occurrence: US)
  Receive Date: 20251204
  Receipt Date: 20251204
  Transmission Date: 20260118
  Serious: Yes (Other)
  Sender: PFIZER
  Company Number: US-PFIZER INC-202500236643

PATIENT
  Sex: Female

DRUGS (1)
  1. DOPAMINE HYDROCHLORIDE [Suspect]
     Active Substance: DOPAMINE HYDROCHLORIDE
     Dosage: UNK

REACTIONS (4)
  - Drug dependence [Unknown]
  - Hypothyroidism [Unknown]
  - Hair colour changes [Unknown]
  - Acne cystic [Unknown]
